FAERS Safety Report 4631140-X (Version None)
Quarter: 2005Q2

REPORT INFORMATION
  Report Type: 
  Country: None (occurrence: None)
  Receive Date: 20050407
  Receipt Date: 20050407
  Transmission Date: 20051028
  Serious: No
  Sender: FDA-Public Use
  Company Number: None

PATIENT
  Age: 79 Year
  Sex: Male

DRUGS (8)
  1. ZOCOR [Suspect]
     Indication: HYPERLIPIDAEMIA
     Dosage: 40 MG   QD   ORAL
     Route: 048
  2. ZESTRIL [Concomitant]
  3. HYTRIN [Concomitant]
  4. HYDROCHLOROTHIAZIDE [Concomitant]
  5. TENORMIN [Concomitant]
  6. ASPIRIN [Concomitant]
  7. VITAMIN E [Concomitant]
  8. FENOLDIPINE [Concomitant]

REACTIONS (1)
  - HEPATITIS [None]
